FAERS Safety Report 17545545 (Version 1)
Quarter: 2020Q1

REPORT INFORMATION
  Report Type: Spontaneous
  Country: CN (occurrence: CN)
  Receive Date: 20200316
  Receipt Date: 20200316
  Transmission Date: 20200409
  Serious: Yes (Hospitalization)
  Sender: FDA-Public Use
  Company Number: CN-BAXTER-2020BAX005571

PATIENT
  Age: 12 Year
  Sex: Male
  Weight: 35.5 kg

DRUGS (4)
  1. ENDOXAN [Suspect]
     Active Substance: CYCLOPHOSPHAMIDE
     Indication: ACUTE LYMPHOCYTIC LEUKAEMIA
     Dosage: ENDOXAN INJECTION + 0.9% NS 100 ML
     Route: 041
     Dates: start: 20200116, end: 20200116
  2. 0.9% SODIUM CHLORIDE INJECTION [Suspect]
     Active Substance: SODIUM CHLORIDE
     Dosage: CYTARABINE HYDROCHLORIDE INJECTION + 0.9% NS 250ML
     Route: 041
     Dates: start: 20200116, end: 20200116
  3. 0.9% SODIUM CHLORIDE INJECTION [Suspect]
     Active Substance: SODIUM CHLORIDE
     Indication: MEDICATION DILUTION
     Dosage: ENDOXAN INJECTION + 0.9% NS 100 ML
     Route: 041
     Dates: start: 20200116, end: 20200116
  4. CYTARABINE HYDROCHLORIDE [Suspect]
     Active Substance: CYTARABINE HYDROCHLORIDE
     Indication: ACUTE LYMPHOCYTIC LEUKAEMIA
     Dosage: CYTARABINE HYDROCHLORIDE INJECTION + 0.9% NS 250ML
     Route: 041
     Dates: start: 20200116, end: 20200120

REACTIONS (2)
  - Agranulocytosis [Recovered/Resolved]
  - Bone marrow failure [Recovering/Resolving]

NARRATIVE: CASE EVENT DATE: 20200118
